FAERS Safety Report 9868936 (Version 4)
Quarter: 2014Q1

REPORT INFORMATION
  Report Type: Spontaneous
  Country: JP (occurrence: JP)
  Receive Date: 20140204
  Receipt Date: 20140313
  Transmission Date: 20141002
  Serious: Yes (Other)
  Sender: FDA-Public Use
  Company Number: JP-ROCHE-1344121

PATIENT
  Age: 39 Year
  Sex: Female
  Weight: 55.07 kg

DRUGS (4)
  1. XOLAIR [Suspect]
     Indication: ASTHMA
     Route: 058
     Dates: start: 20120927, end: 20130902
  2. ONON [Concomitant]
     Route: 065
     Dates: start: 2008
  3. THEODUR [Concomitant]
     Route: 065
     Dates: start: 2008
  4. ADOAIR [Concomitant]

REACTIONS (7)
  - Sarcoidosis [Unknown]
  - Autoimmune thyroiditis [Not Recovered/Not Resolved]
  - Blood immunoglobulin E increased [Unknown]
  - Scleritis [Recovering/Resolving]
  - Angioedema [Recovering/Resolving]
  - Platelet count increased [Unknown]
  - Asthma [Unknown]
